FAERS Safety Report 5129655-3 (Version None)
Quarter: 2006Q4

REPORT INFORMATION
  Report Type: 
  Country: None (occurrence: None)
  Receive Date: 20061018
  Receipt Date: 20041229
  Transmission Date: 20070319
  Serious: Yes (Death)
  Sender: FDA-Public Use
  Company Number: US-GLAXOSMITHKLINE-A0539152A

PATIENT
  Age: 52 Year
  Sex: Male
  Weight: 78.2 kg

DRUGS (4)
  1. PAXIL [Suspect]
     Indication: ANXIETY
     Route: 048
     Dates: start: 20030514, end: 20030625
  2. SEROQUEL [Concomitant]
     Indication: DRUG USE FOR UNKNOWN INDICATION
     Dosage: 25MG THREE TIMES PER DAY
     Route: 048
  3. ZOCOR [Concomitant]
     Indication: DRUG USE FOR UNKNOWN INDICATION
     Dosage: 20MG PER DAY
     Route: 048
  4. ASPIRIN [Concomitant]
     Indication: DRUG USE FOR UNKNOWN INDICATION

REACTIONS (18)
  - ADVERSE EVENT [None]
  - AGITATION [None]
  - ANOREXIA [None]
  - BALANCE DISORDER [None]
  - COMPLETED SUICIDE [None]
  - CONSTIPATION [None]
  - GUN SHOT WOUND [None]
  - INSOMNIA [None]
  - MOUTH INJURY [None]
  - OVERDOSE [None]
  - PAIN [None]
  - PANIC ATTACK [None]
  - PARANOIA [None]
  - RESTLESSNESS [None]
  - SEXUAL DYSFUNCTION [None]
  - SUICIDE ATTEMPT [None]
  - TOXICOLOGIC TEST ABNORMAL [None]
  - TRAUMATIC BRAIN INJURY [None]
